FAERS Safety Report 7614164-X (Version None)
Quarter: 2011Q3

REPORT INFORMATION
  Report Type: 
  Country: None (occurrence: None)
  Receive Date: 20110711
  Receipt Date: 20110419
  Transmission Date: 20111222
  Serious: Yes (Hospitalization)
  Sender: FDA-Public Use
  Company Number: DSU-2011-02854

PATIENT
  Age: 62 Year
  Sex: Female

DRUGS (1)
  1. BENICAR [Suspect]
     Indication: SARCOIDOSIS
     Dosage: 160 MG (40 MG, Q6H), PER ORAL
     Route: 048

REACTIONS (2)
  - OVERDOSE [None]
  - CHRONIC SINUSITIS [None]
